FAERS Safety Report 9431873 (Version 2)
Quarter: 2013Q3

REPORT INFORMATION
  Report Type: Spontaneous
  Country: JP (occurrence: JP)
  Receive Date: 20130731
  Receipt Date: 20130902
  Transmission Date: 20140515
  Serious: Yes (Hospitalization)
  Sender: FDA-Public Use
  Company Number: PHHY2013JP079977

PATIENT
  Age: 56 Year
  Sex: Male

DRUGS (3)
  1. TEGRETOL [Suspect]
     Indication: EPILEPSY
     Dosage: 1000 MG, DAILY
     Route: 048
     Dates: end: 20130725
  2. RIVOTRIL [Concomitant]
     Dosage: 1.5 MG, UNK
     Route: 048
  3. PHENOBAL [Concomitant]
     Dosage: 120 MG, UNK
     Dates: end: 20130725

REACTIONS (2)
  - Neoplasm malignant [Unknown]
  - Intestinal obstruction [Unknown]
